FAERS Safety Report 12807310 (Version 2)
Quarter: 2019Q4

REPORT INFORMATION
  Report Type: Spontaneous
  Country: US (occurrence: US)
  Receive Date: 20161004
  Receipt Date: 20191028
  Transmission Date: 20200122
  Serious: Yes (Other)
  Sender: FDA-Public Use
  Company Number: US-PFIZER INC-2016462240

PATIENT
  Age: 60 Year
  Sex: Male

DRUGS (11)
  1. SILDENAFIL CITRATE. [Suspect]
     Active Substance: SILDENAFIL CITRATE
     Dosage: 0.5 DF (1/2 TABLET) AS NEEDED
     Dates: start: 20140507, end: 20140507
  2. SILDENAFIL CITRATE. [Suspect]
     Active Substance: SILDENAFIL CITRATE
     Dosage: 0.5 DF (1/2 TABLET) AS NEEDED
     Dates: start: 20140917, end: 20140917
  3. SILDENAFIL CITRATE. [Suspect]
     Active Substance: SILDENAFIL CITRATE
     Dosage: 1 DF (1 TABLET) AS NEEDED, (QTY. 4 TABLETS)
     Dates: start: 20160224, end: 20160228
  4. SILDENAFIL CITRATE. [Suspect]
     Active Substance: SILDENAFIL CITRATE
     Indication: ERECTILE DYSFUNCTION
     Dosage: 0.5 DF (1/2 TABLET) AS NEEDED
     Dates: start: 20140120, end: 20140122
  5. SILDENAFIL CITRATE. [Suspect]
     Active Substance: SILDENAFIL CITRATE
     Dosage: 0.5 DF (1/2 TABLET) AS NEEDED
     Dates: start: 20141009, end: 20141009
  6. SILDENAFIL CITRATE. [Suspect]
     Active Substance: SILDENAFIL CITRATE
     Dosage: 1 DF (1 TABLET) AS NEEDED, (QTY. 4 TABLETS)
     Dates: start: 20161019, end: 20161023
  7. SILDENAFIL CITRATE. [Suspect]
     Active Substance: SILDENAFIL CITRATE
     Dosage: 0.5 DF (1/2 TABLET) AS NEEDED, (QTY. 2 TABLETS)
     Dates: start: 20150511, end: 20150513
  8. VIAGRA [Suspect]
     Active Substance: SILDENAFIL CITRATE
     Dosage: UNK
     Route: 048
     Dates: start: 2004, end: 20150121
  9. LEVITRA [Concomitant]
     Active Substance: VARDENAFIL HYDROCHLORIDE
     Indication: ERECTILE DYSFUNCTION
     Dosage: 0.5 DF (1/2 TABLET) AS NEEDED PRIOR TO SEXUAL ACTIVITY (QTY. 8)
     Dates: start: 20110818, end: 20110826
  10. SILDENAFIL CITRATE. [Suspect]
     Active Substance: SILDENAFIL CITRATE
     Dosage: 0.5 DF (1/2 TABLET) AS NEEDED
     Dates: start: 20140605, end: 20140605
  11. SILDENAFIL CITRATE. [Suspect]
     Active Substance: SILDENAFIL CITRATE
     Dosage: 0.5 DF (1/2 TABLET) AS NEEDED
     Dates: start: 20141231, end: 20141231

REACTIONS (3)
  - Malignant melanoma [Unknown]
  - Basal cell carcinoma [Unknown]
  - Emotional distress [Unknown]

NARRATIVE: CASE EVENT DATE: 201401
